FAERS Safety Report 6526984-3 (Version None)
Quarter: 2010Q1

REPORT INFORMATION
  Report Type: 
  Country: None (occurrence: None)
  Receive Date: 20100105
  Receipt Date: 20091229
  Transmission Date: 20100710
  Serious: Yes (Other)
  Sender: FDA-Public Use
  Company Number: AU-PFIZER INC-2009314996

PATIENT
  Age: 12 Year
  Sex: Male
  Weight: 74 kg

DRUGS (3)
  1. GENOTROPIN [Suspect]
     Indication: PRADER-WILLI SYNDROME
     Dosage: 0.4 MG, 1X/DAY
  2. LOVAN [Concomitant]
     Indication: MENTAL DISORDER
     Dosage: 30 MG, 1X/DAY
  3. RISPERDAL [Concomitant]
     Indication: MENTAL DISORDER
     Dosage: 1 ML, 2X/DAY

REACTIONS (6)
  - ABNORMAL BEHAVIOUR [None]
  - APPETITE DISORDER [None]
  - EMOTIONAL DISORDER [None]
  - INSOMNIA [None]
  - INTENTIONAL SELF-INJURY [None]
  - MANIA [None]
